FAERS Safety Report 17919417 (Version 2)
Quarter: 2020Q3

REPORT INFORMATION
  Report Type: Spontaneous
  Country: US (occurrence: US)
  Receive Date: 20200619
  Receipt Date: 20200921
  Transmission Date: 20201103
  Serious: No
  Sender: FDA-Public Use
  Company Number: US-CATALYST PHARMACEUTICALS, INC-2020CAT00175

PATIENT
  Age: 69 Year
  Sex: Female
  Weight: 89.34 kg

DRUGS (23)
  1. FIRDAPSE [Suspect]
     Active Substance: AMIFAMPRIDINE PHOSPHATE
     Dosage: 10 MG, 1X/DAY (AT NIGHT)
     Route: 048
  2. DUONEB [Concomitant]
     Active Substance: ALBUTEROL SULFATE\IPRATROPIUM BROMIDE
  3. BENZONATATE. [Concomitant]
     Active Substance: BENZONATATE
  4. ALBUTEROL INHALER [Concomitant]
     Active Substance: ALBUTEROL
  5. QUETIAPINE. [Concomitant]
     Active Substance: QUETIAPINE
  6. FIRDAPSE [Suspect]
     Active Substance: AMIFAMPRIDINE PHOSPHATE
     Indication: MYASTHENIC SYNDROME
     Dosage: 15 MG, 2X/DAY (MORNING AND LUNCH)
     Route: 048
     Dates: start: 20190213
  7. FIRDAPSE [Suspect]
     Active Substance: AMIFAMPRIDINE PHOSPHATE
     Dosage: 15 MG, 2X/DAY (MORNING AND LUNCH)
     Route: 048
  8. VITAMIN D [Concomitant]
     Active Substance: VITAMIN D NOS
  9. ATORVASTATIN [Concomitant]
     Active Substance: ATORVASTATIN
  10. LOSARTAN. [Concomitant]
     Active Substance: LOSARTAN
  11. GLIMEPIRIDE. [Concomitant]
     Active Substance: GLIMEPIRIDE
  12. UNSPECIFIED MEDICATION (^GLEUTEROSTAN ER^) [Concomitant]
  13. B COMPLEX VITAMIN [Concomitant]
  14. FIRDAPSE [Suspect]
     Active Substance: AMIFAMPRIDINE PHOSPHATE
     Dosage: 10 MG, 1X/DAY (AT NIGHT)
     Route: 048
     Dates: start: 20190213
  15. LEVOTHYROXINE. [Concomitant]
     Active Substance: LEVOTHYROXINE
  16. VITAMIN D2 [Concomitant]
     Active Substance: ERGOCALCIFEROL
  17. GUAIFENESIN ER [Concomitant]
     Active Substance: GUAIFENESIN
  18. IPRATROPIUM / ALBUTEROL [Concomitant]
     Dosage: 3 ML
  19. GAMMAGARD [Concomitant]
     Active Substance: HUMAN IMMUNOGLOBULIN G
  20. KEPPRA [Concomitant]
     Active Substance: LEVETIRACETAM
  21. SEROQUEL [Concomitant]
     Active Substance: QUETIAPINE FUMARATE
  22. MUCINEX [Concomitant]
     Active Substance: GUAIFENESIN
  23. ZOLOFT [Concomitant]
     Active Substance: SERTRALINE HYDROCHLORIDE

REACTIONS (3)
  - Rash erythematous [Not Recovered/Not Resolved]
  - Rash pruritic [Not Recovered/Not Resolved]
  - Fatigue [Not Recovered/Not Resolved]

NARRATIVE: CASE EVENT DATE: 202004
